FAERS Safety Report 4716551-6 (Version None)
Quarter: 2005Q3

REPORT INFORMATION
  Report Type: 
  Country: None (occurrence: None)
  Receive Date: 20050714
  Receipt Date: 20050630
  Transmission Date: 20060218
  Serious: Yes (Life-Threatening)
  Sender: FDA-Public Use
  Company Number: S05-NLD-02364-02

PATIENT
  Age: 1 Day
  Sex: Female

DRUGS (2)
  1. ESCITALOPRAM OXALATE [Suspect]
     Dosage: 20 MG QD TRANSPLACENTAL
     Route: 064
     Dates: start: 20040616, end: 20050616
  2. OXAZEPAM [Suspect]
     Dosage: 20 MG QD TRANSPLACENTAL
     Route: 064
     Dates: start: 20040616, end: 20050616

REACTIONS (3)
  - DRUG EXPOSURE DURING PREGNANCY [None]
  - MECONIUM IN AMNIOTIC FLUID [None]
  - NEONATAL RESPIRATORY DEPRESSION [None]
